FAERS Safety Report 16203057 (Version 1)
Quarter: 2019Q2

REPORT INFORMATION
  Report Type: Report from Study
  Country: US (occurrence: US)
  Receive Date: 20190416
  Receipt Date: 20190416
  Transmission Date: 20190711
  Serious: Yes (Hospitalization)
  Sender: FDA-Public Use
  Company Number: US-TESAROUBC-2018-TSO1995-US

PATIENT
  Age: 55 Year
  Sex: Female

DRUGS (6)
  1. CLARINEX [Concomitant]
     Active Substance: DESLORATADINE
     Indication: PRODUCT USED FOR UNKNOWN INDICATION
     Route: 065
  2. SINGULAIR [Concomitant]
     Active Substance: MONTELUKAST SODIUM
     Indication: PRODUCT USED FOR UNKNOWN INDICATION
     Route: 065
  3. ZEJULA [Suspect]
     Active Substance: NIRAPARIB
     Indication: OVARIAN CANCER
     Dosage: 100 MG, QAM
     Route: 048
     Dates: start: 20181116, end: 20190317
  4. CETIRIZINE [Concomitant]
     Active Substance: CETIRIZINE HYDROCHLORIDE
     Indication: PRODUCT USED FOR UNKNOWN INDICATION
     Route: 065
  5. DOCUSATE SODIUM. [Concomitant]
     Active Substance: DOCUSATE SODIUM
     Indication: PRODUCT USED FOR UNKNOWN INDICATION
     Route: 065
  6. OSTEOMATRIX [Concomitant]
     Indication: PRODUCT USED FOR UNKNOWN INDICATION

REACTIONS (8)
  - Carbohydrate antigen 125 increased [Unknown]
  - Underdose [Unknown]
  - Product dose omission [Not Recovered/Not Resolved]
  - Constipation [Unknown]
  - Gastrointestinal motility disorder [Unknown]
  - Recurrent cancer [Unknown]
  - Contusion [Unknown]
  - Memory impairment [Unknown]

NARRATIVE: CASE EVENT DATE: 201811
